FAERS Safety Report 24132821 (Version 2)
Quarter: 2024Q3

REPORT INFORMATION
  Report Type: Spontaneous
  Country: US (occurrence: US)
  Receive Date: 20240724
  Receipt Date: 20240816
  Transmission Date: 20241017
  Serious: No
  Sender: BAUSCH AND LOMB
  Company Number: US-BAUSCH-BL-2024-011109

PATIENT
  Age: 44 Year
  Sex: Male

DRUGS (1)
  1. HALOBETASOL [Suspect]
     Active Substance: HALOBETASOL
     Indication: Rash
     Route: 061

REACTIONS (1)
  - Therapeutic product effect incomplete [Unknown]
